FAERS Safety Report 23134009 (Version 1)
Quarter: 2023Q4

REPORT INFORMATION
  Report Type: Spontaneous
  Country: US (occurrence: None)
  Receive Date: 20231031
  Receipt Date: 20231031
  Transmission Date: 20240109
  Serious: No
  Sender: FDA-Public Use
  Company Number: None

PATIENT
  Sex: Female

DRUGS (2)
  1. HUMIRA [Suspect]
     Active Substance: ADALIMUMAB
     Indication: Rheumatoid arthritis
     Dosage: OTHER QUANTITY : 40/0.4 MG/ML;?FREQUENCY : EVERY OTHER WEEK;?
     Route: 058
     Dates: start: 202306
  2. OFEV [Concomitant]
     Active Substance: NINTEDANIB

REACTIONS (4)
  - Colitis ulcerative [None]
  - Joint swelling [None]
  - Arthralgia [None]
  - Drug ineffective [None]
